FAERS Safety Report 5331586-0 (Version None)
Quarter: 2007Q2

REPORT INFORMATION
  Report Type: 
  Country: None (occurrence: None)
  Receive Date: 20070522
  Receipt Date: 20070515
  Transmission Date: 20071010
  Serious: Yes (Other)
  Sender: FDA-Public Use
  Company Number: IE-PFIZER INC-2007031971

PATIENT
  Age: 38 Year
  Sex: Female

DRUGS (3)
  1. LYRICA [Suspect]
     Indication: BACK PAIN
     Route: 048
     Dates: start: 20060906, end: 20060908
  2. DIAZEPAM [Concomitant]
  3. NIMESULIDE [Concomitant]

REACTIONS (2)
  - CYANOSIS [None]
  - PARAESTHESIA [None]
